FAERS Safety Report 17543159 (Version 1)
Quarter: 2020Q1

REPORT INFORMATION
  Report Type: Spontaneous
  Country: FR (occurrence: FR)
  Receive Date: 20200316
  Receipt Date: 20200316
  Transmission Date: 20200409
  Serious: Yes (Life-Threatening, Other)
  Sender: FDA-Public Use
  Company Number: FR-AUROBINDO-AUR-APL-2020-012145

PATIENT
  Age: 10 Year
  Sex: Female
  Weight: 32 kg

DRUGS (4)
  1. LARGACTIL [Interacting]
     Active Substance: CHLORPROMAZINE
     Indication: HALLUCINATION
     Dosage: 10 MILLIGRAM, ONCE A DAY
     Route: 040
     Dates: start: 20200205, end: 20200211
  2. NOXAFIL [Interacting]
     Active Substance: POSACONAZOLE
     Indication: ASPERGILLUS INFECTION
     Dosage: 600 MILLIGRAM, ONCE A DAY
     Route: 041
     Dates: start: 20200131, end: 20200205
  3. PANTOPRAZOLE SODIUM. [Suspect]
     Active Substance: PANTOPRAZOLE SODIUM
     Indication: PRODUCT USED FOR UNKNOWN INDICATION
     Dosage: UNK (NOT KNOWN)
     Route: 041
     Dates: start: 202002
  4. VORICONAZOLE. [Interacting]
     Active Substance: VORICONAZOLE
     Indication: ASPERGILLUS INFECTION
     Dosage: 500 MILLIGRAM, ONCE A DAY
     Route: 041
     Dates: start: 20200205, end: 20200211

REACTIONS (7)
  - Torsade de pointes [Recovering/Resolving]
  - Drug interaction [Recovered/Resolved]
  - Electrocardiogram QT prolonged [Recovering/Resolving]
  - Overdose [Recovering/Resolving]
  - Nightmare [Recovered/Resolved]
  - Hallucination [Recovering/Resolving]
  - Drug eruption [Recovering/Resolving]

NARRATIVE: CASE EVENT DATE: 202002
